FAERS Safety Report 4747371-4 (Version None)
Quarter: 2005Q3

REPORT INFORMATION
  Report Type: 
  Country: None (occurrence: None)
  Receive Date: 20050817
  Receipt Date: 20050506
  Transmission Date: 20060218
  Serious: Yes (Hospitalization, Disabling)
  Sender: FDA-Public Use
  Company Number: US-MERCK-0505USA00963

PATIENT
  Age: 74 Year
  Sex: Male
  Weight: 85 kg

DRUGS (22)
  1. VIOXX [Suspect]
     Indication: ARTHRITIS
     Route: 048
     Dates: start: 20010101, end: 20040901
  2. VIOXX [Suspect]
     Indication: BACK PAIN
     Route: 048
     Dates: start: 20010101, end: 20040901
  3. ACIPHEX [Concomitant]
     Indication: OESOPHAGEAL DISORDER
     Route: 065
     Dates: start: 20000101
  4. AGGRENOX [Concomitant]
     Indication: ANTIPLATELET THERAPY
     Route: 065
     Dates: start: 20031101
  5. ALPRAZOLAM [Concomitant]
     Route: 065
  6. AMBIEN [Concomitant]
     Indication: SLEEP DISORDER
     Route: 065
  7. BACLOFEN [Concomitant]
     Indication: MUSCLE SPASMS
     Route: 065
  8. FLEXERIL [Concomitant]
     Route: 065
  9. DOXAZOSIN MESYLATE [Concomitant]
     Route: 065
  10. DOXYCYCLINE [Concomitant]
     Indication: ANTIBIOTIC LEVEL THERAPEUTIC
     Route: 065
  11. FLOMAX [Concomitant]
     Indication: BLADDER DISORDER
     Route: 065
  12. GLUCOTROL [Concomitant]
     Indication: DIABETES MELLITUS
     Route: 065
  13. GUAIFENESIN [Concomitant]
     Indication: COUGH
     Route: 065
  14. LIPITOR [Concomitant]
     Indication: BLOOD CHOLESTEROL INCREASED
     Route: 065
     Dates: start: 20001201, end: 20031201
  15. ZOCOR [Concomitant]
     Indication: BLOOD CHOLESTEROL INCREASED
     Route: 048
     Dates: start: 20001201, end: 20031201
  16. PREVACID [Concomitant]
     Indication: GASTROOESOPHAGEAL REFLUX DISEASE
     Route: 065
     Dates: start: 20000101
  17. QUININE SULFATE [Concomitant]
     Indication: MUSCLE SPASMS
     Route: 065
  18. TERAZOSIN HYDROCHLORIDE [Concomitant]
     Indication: HYPERTENSION
     Route: 065
     Dates: start: 20010101, end: 20010101
  19. ZITHROMAX [Concomitant]
     Route: 065
  20. ZOLOFT [Concomitant]
     Indication: DEPRESSION
     Route: 065
  21. ASPIRIN [Concomitant]
     Route: 065
  22. NORVASC [Concomitant]
     Indication: HYPERTENSION
     Route: 065
     Dates: start: 20031201, end: 20031201

REACTIONS (7)
  - ABDOMINAL STRANGULATED HERNIA [None]
  - CEREBRAL INFARCTION [None]
  - DEPRESSION [None]
  - DIABETES MELLITUS [None]
  - HERNIA [None]
  - NEPHROLITHIASIS [None]
  - ROTATOR CUFF SYNDROME [None]
